FAERS Safety Report 9169426 (Version 1)
Quarter: 2013Q1

REPORT INFORMATION
  Report Type: Spontaneous
  Country: JP (occurrence: JP)
  Receive Date: 20130318
  Receipt Date: 20130318
  Transmission Date: 20140127
  Serious: Yes (Hospitalization)
  Sender: FDA-Public Use
  Company Number: JP-ROCHE-643713

PATIENT
  Age: 12 Year
  Sex: Female
  Weight: 39 kg

DRUGS (3)
  1. ROCEPHIN [Suspect]
     Indication: URINARY TRACT INFECTION
     Route: 041
     Dates: start: 20090504, end: 20090522
  2. AMIKACIN SULFATE [Concomitant]
     Indication: URINARY TRACT INFECTION
     Route: 042
     Dates: start: 20090507, end: 20090518
  3. PLASMA [Concomitant]
     Dosage: DRUG: PLASMA PARTITIONS PREPARATIONS
     Route: 042
     Dates: start: 20090504, end: 20090505

REACTIONS (1)
  - Cholelithiasis [Recovered/Resolved]
